FAERS Safety Report 4994881-0 (Version None)
Quarter: 2006Q2

REPORT INFORMATION
  Report Type: 
  Country: None (occurrence: None)
  Receive Date: 20060503
  Receipt Date: 20060427
  Transmission Date: 20061013
  Serious: Yes (Death, Other)
  Sender: FDA-Public Use
  Company Number: US200604002109

PATIENT
  Age: 72 Year
  Sex: Male

DRUGS (1)
  1. XIGRIS [Suspect]
     Indication: SEPSIS
     Dosage: INTRAVENOUS
     Route: 042
     Dates: start: 20060409

REACTIONS (3)
  - CARDIOGENIC SHOCK [None]
  - HEMIPLEGIA [None]
  - MUSCLE TWITCHING [None]
